FAERS Safety Report 9194561 (Version 1)
Quarter: 2013Q1

REPORT INFORMATION
  Report Type: Spontaneous
  Country: US (occurrence: US)
  Receive Date: 20130327
  Receipt Date: 20130327
  Transmission Date: 20140127
  Serious: No
  Sender: FDA-Public Use
  Company Number: US-ALLERGAN-1205381US

PATIENT
  Age: 28 Year
  Sex: Female

DRUGS (1)
  1. LATISSE 0.03% [Suspect]
     Indication: GROWTH OF EYELASHES
     Dosage: 2 GTT, QHS
     Route: 061
     Dates: start: 201203, end: 20120412

REACTIONS (11)
  - Incorrect route of drug administration [Unknown]
  - Scleritis [Recovered/Resolved]
  - Skin irritation [Recovered/Resolved]
  - Rash [Recovered/Resolved]
  - Visual impairment [Recovered/Resolved]
  - Erythema [Recovered/Resolved]
  - Intraocular pressure increased [Recovered/Resolved]
  - Photophobia [Recovered/Resolved]
  - Blepharal pigmentation [Recovered/Resolved]
  - Madarosis [Recovered/Resolved]
  - Scleral hyperaemia [Recovered/Resolved]
